FAERS Safety Report 13744665 (Version 1)
Quarter: 2017Q3

REPORT INFORMATION
  Report Type: Spontaneous
  Country: US (occurrence: US)
  Receive Date: 20170711
  Receipt Date: 20170711
  Transmission Date: 20171127
  Serious: Yes (Hospitalization)
  Sender: FDA-Public Use
  Company Number: None

PATIENT
  Age: 46 Year
  Sex: Male

DRUGS (8)
  1. OCALIVA [Suspect]
     Active Substance: OBETICHOLIC ACID
     Indication: BILIARY CIRRHOSIS PRIMARY
     Dosage: 1 TABLET DAILY ORAL
     Route: 048
     Dates: start: 20170210
  2. ZETIA [Concomitant]
     Active Substance: EZETIMIBE
  3. GABAPENTIN. [Concomitant]
     Active Substance: GABAPENTIN
  4. HYDROXYZ [Concomitant]
     Active Substance: HYDROXYZINE HYDROCHLORIDE
  5. SOMA [Concomitant]
     Active Substance: CARISOPRODOL
  6. PREVALITE [Concomitant]
     Active Substance: CHOLESTYRAMINE
  7. METFORMIN [Concomitant]
     Active Substance: METFORMIN HYDROCHLORIDE
  8. RAMIPRIL. [Concomitant]
     Active Substance: RAMIPRIL

REACTIONS (6)
  - Dehydration [None]
  - Blood calcium increased [None]
  - Exostosis [None]
  - Intervertebral disc degeneration [None]
  - Blood sodium decreased [None]
  - Laboratory test abnormal [None]

NARRATIVE: CASE EVENT DATE: 20170628
